FAERS Safety Report 5531461-2 (Version None)
Quarter: 2007Q4

REPORT INFORMATION
  Report Type: 
  Country: None (occurrence: None)
  Receive Date: 20071203
  Receipt Date: 20071121
  Transmission Date: 20080405
  Serious: Yes (Hospitalization, Disabling)
  Sender: FDA-Public Use
  Company Number: PHEH2007US14926

PATIENT
  Age: 38 Year
  Sex: Female
  Weight: 117 kg

DRUGS (2)
  1. LAMISIL [Suspect]
     Indication: TINEA CAPITIS
     Dosage: 250 MG, QD
     Route: 048
     Dates: start: 20070801, end: 20071001
  2. SULFONAMIDES [Concomitant]

REACTIONS (16)
  - ALOPECIA [None]
  - ARTHRALGIA [None]
  - CONTUSION [None]
  - HAEMATOCRIT DECREASED [None]
  - HAEMOGLOBIN DECREASED [None]
  - JOINT STIFFNESS [None]
  - MEAN CELL HAEMOGLOBIN [None]
  - MEAN CELL VOLUME DECREASED [None]
  - NEUTROPHIL PERCENTAGE INCREASED [None]
  - OEDEMA PERIPHERAL [None]
  - PSORIASIS [None]
  - RASH [None]
  - RED CELL DISTRIBUTION WIDTH INCREASED [None]
  - SKIN BURNING SENSATION [None]
  - SKIN EXFOLIATION [None]
  - VULVOVAGINAL PRURITUS [None]
